FAERS Safety Report 8199717-5 (Version None)
Quarter: 2012Q1

REPORT INFORMATION
  Report Type: 
  Country: None (occurrence: None)
  Receive Date: 20120311
  Receipt Date: 20120306
  Transmission Date: 20120608
  Serious: Yes (Hospitalization, Other)
  Sender: FDA-Public Use
  Company Number: PHFR2012GB001295

PATIENT
  Sex: Male

DRUGS (3)
  1. CLOZARIL [Suspect]
     Indication: SCHIZOPHRENIA
     Dosage: 600 MG, DAILY
     Route: 048
     Dates: start: 19910521
  2. MIRTAZAPINE [Concomitant]
     Indication: DEPRESSION
     Dosage: 45 MG, DAILY
     Route: 048
     Dates: start: 20080101
  3. VALPROATE SODIUM [Concomitant]
     Indication: SCHIZOPHRENIA
     Dosage: 400 MG, DAILY
     Route: 048
     Dates: start: 20080101

REACTIONS (2)
  - PENIS CARCINOMA [None]
  - GENITAL LESION [None]
